FAERS Safety Report 9691994 (Version 1)
Quarter: 2013Q4

REPORT INFORMATION
  Report Type: Spontaneous
  Country: BR (occurrence: BR)
  Receive Date: 20131118
  Receipt Date: 20131118
  Transmission Date: 20140711
  Serious: Yes (Hospitalization, Disabling)
  Sender: FDA-Public Use
  Company Number: BR-BIOGENIDEC-2013BI108816

PATIENT
  Age: 44 Year
  Sex: Female

DRUGS (14)
  1. TYSABRI [Suspect]
     Indication: MULTIPLE SCLEROSIS
     Route: 042
     Dates: start: 20120613
  2. PROSSO [Concomitant]
  3. VITAMIN A [Concomitant]
  4. VITAMIN D [Concomitant]
  5. RIVOTRIL [Concomitant]
  6. SETRALINE [Concomitant]
  7. IRON SULPHATE [Concomitant]
  8. OMEPRAZOLE [Concomitant]
  9. SIMETHICONE [Concomitant]
  10. BACLOFEN [Concomitant]
  11. ENOXAPARIN [Concomitant]
  12. TRAMADOL [Concomitant]
  13. DIPYRONE [Concomitant]
  14. PARACETAMOL [Concomitant]

REACTIONS (3)
  - Bone prosthesis insertion [Not Recovered/Not Resolved]
  - Urinary tract infection [Recovered/Resolved]
  - Patient-device incompatibility [Not Recovered/Not Resolved]
